FAERS Safety Report 4630263-9 (Version None)
Quarter: 2005Q2

REPORT INFORMATION
  Report Type: 
  Country: None (occurrence: None)
  Receive Date: 20050406
  Receipt Date: 20050317
  Transmission Date: 20051028
  Serious: Yes (Death)
  Sender: FDA-Public Use
  Company Number: DE_050315471

PATIENT
  Age: 41 Year
  Sex: Female

DRUGS (1)
  1. XIGRIS [Suspect]
     Indication: SEPSIS
     Dosage: 24 UG/KG/HR
     Dates: start: 20050306, end: 20050309

REACTIONS (14)
  - CARDIAC FAILURE [None]
  - CHRONIC RIGHT VENTRICULAR FAILURE [None]
  - CONTUSION [None]
  - DILATATION ATRIAL [None]
  - ENDOCARDITIS [None]
  - HAEMATOMA [None]
  - HAEMOTHORAX [None]
  - MULTI-ORGAN FAILURE [None]
  - MUSCLE DISORDER [None]
  - PETECHIAE [None]
  - PLEURAL EFFUSION [None]
  - POST PROCEDURAL HAEMORRHAGE [None]
  - PULMONARY FUNCTION TEST DECREASED [None]
  - SOFT TISSUE HAEMORRHAGE [None]
